FAERS Safety Report 4330358-3 (Version None)
Quarter: 2004Q1

REPORT INFORMATION
  Report Type: 
  Country: None (occurrence: None)
  Receive Date: 20040329
  Receipt Date: 20040315
  Transmission Date: 20041129
  Serious: Yes (Death, Other)
  Sender: FDA-Public Use
  Company Number: 200307824

PATIENT
  Age: 72 Year
  Sex: Male

DRUGS (1)
  1. ACETAMINOPHEN [Suspect]
     Dosage: UP TO 78 TABLETS PO
     Route: 048
     Dates: start: 20030813, end: 20030813

REACTIONS (3)
  - CIRCULATORY COLLAPSE [None]
  - DRUG TOXICITY [None]
  - INTENTIONAL OVERDOSE [None]
